FAERS Safety Report 12614077 (Version 1)
Quarter: 2016Q3

REPORT INFORMATION
  Report Type: Spontaneous
  Country: ES (occurrence: ES)
  Receive Date: 20160802
  Receipt Date: 20160802
  Transmission Date: 20161109
  Serious: Yes (Hospitalization, Other)
  Sender: FDA-Public Use
  Company Number: ES-PFIZER INC-2016357626

PATIENT
  Age: 45 Year
  Sex: Female
  Weight: 68 kg

DRUGS (1)
  1. SALAZOPYRINA [Suspect]
     Active Substance: SULFASALAZINE
     Indication: ANKYLOSING SPONDYLITIS
     Dosage: 500 MG, 2X/DAY
     Route: 048
     Dates: start: 20160617, end: 20160702

REACTIONS (3)
  - Pleuropericarditis [Recovered/Resolved]
  - Pyrexia [Recovered/Resolved]
  - Polyserositis [Recovered/Resolved]

NARRATIVE: CASE EVENT DATE: 20160630
